FAERS Safety Report 21845214 (Version 2)
Quarter: 2023Q1

REPORT INFORMATION
  Report Type: Spontaneous
  Country: US (occurrence: None)
  Receive Date: 20230110
  Receipt Date: 20230221
  Transmission Date: 20230417
  Serious: No
  Sender: FDA-Public Use
  Company Number: 2022A416580

PATIENT
  Age: 25498 Day
  Sex: Female
  Weight: 80.7 kg

DRUGS (4)
  1. BYDUREON BCISE [Suspect]
     Active Substance: EXENATIDE
     Indication: Type 2 diabetes mellitus
     Route: 058
     Dates: start: 2022
  2. BYDUREON BCISE [Suspect]
     Active Substance: EXENATIDE
     Dosage: STARTED ABOUT THREE YEARS AGO UNKNOWN
  3. BYDUREON BCISE [Suspect]
     Active Substance: EXENATIDE
     Indication: Type 2 diabetes mellitus
     Dosage: 1.0MG UNKNOWN
     Dates: start: 20221001, end: 20230110
  4. OZEMPIC [Concomitant]
     Active Substance: SEMAGLUTIDE

REACTIONS (8)
  - Injection site pain [Unknown]
  - Dyspepsia [Unknown]
  - Abdominal discomfort [Recovered/Resolved]
  - Nausea [Unknown]
  - Gastrooesophageal reflux disease [Unknown]
  - Device use issue [Unknown]
  - Incorrect dose administered by device [Unknown]
  - Device leakage [Recovered/Resolved]

NARRATIVE: CASE EVENT DATE: 20221223
